FAERS Safety Report 5311829-X (Version None)
Quarter: 2007Q2

REPORT INFORMATION
  Report Type: 
  Country: None (occurrence: None)
  Receive Date: 20070427
  Receipt Date: 20070427
  Transmission Date: 20071010
  Serious: No
  Sender: FDA-Public Use
  Company Number: None

PATIENT
  Age: 62 Year
  Sex: Male
  Weight: 58.9676 kg

DRUGS (1)
  1. QUETIAPINE FUMARATE [Suspect]
     Dosage: 600 MG  DAILY  PO
     Route: 048

REACTIONS (1)
  - PLATELET COUNT DECREASED [None]
